FAERS Safety Report 12484874 (Version 12)
Quarter: 2019Q4

REPORT INFORMATION
  Report Type: Report from Study
  Country: US (occurrence: US)
  Receive Date: 20160621
  Receipt Date: 20191218
  Transmission Date: 20200122
  Serious: Yes (Other)
  Sender: FDA-Public Use
  Company Number: PHHY2016US082307

PATIENT
  Age: 44 Year
  Sex: Female

DRUGS (2)
  1. GILENYA [Suspect]
     Active Substance: FINGOLIMOD HYDROCHLORIDE
     Indication: MULTIPLE SCLEROSIS
     Dosage: UNK UNK, QD
     Route: 048
  2. GILENYA [Suspect]
     Active Substance: FINGOLIMOD HYDROCHLORIDE
     Dosage: UNK UNK, QD
     Route: 048

REACTIONS (12)
  - Herpes zoster [Unknown]
  - Alopecia [Recovered/Resolved]
  - Vulvovaginal dryness [Unknown]
  - CD4 lymphocytes decreased [Recovered/Resolved]
  - Vaginal relaxation [Unknown]
  - Cystocele [Unknown]
  - Sinusitis [Unknown]
  - JC polyomavirus test positive [Unknown]
  - Cervical polyp [Recovered/Resolved]
  - Uterine haemorrhage [Recovered/Resolved]
  - White blood cell count decreased [Unknown]
  - Lymphocyte count decreased [Unknown]

NARRATIVE: CASE EVENT DATE: 20160322
